FAERS Safety Report 7466200-1 (Version None)
Quarter: 2011Q2

REPORT INFORMATION
  Report Type: 
  Country: None (occurrence: None)
  Receive Date: 20110509
  Receipt Date: 20110428
  Transmission Date: 20111010
  Serious: Yes (Other)
  Sender: FDA-Public Use
  Company Number: PHHY2011US16888

PATIENT
  Sex: Male

DRUGS (9)
  1. FOCALIN XR [Concomitant]
  2. AFINITOR [Suspect]
     Indication: ASTROCYTOMA
     Dosage: 5 MG, DAILY
     Route: 048
     Dates: start: 20110107
  3. BACTRIM [Concomitant]
  4. ENALAPRIL [Concomitant]
  5. CLONIDINE [Concomitant]
  6. AFINITOR [Suspect]
     Indication: TUBEROUS SCLEROSIS
  7. VEMPAT [Concomitant]
  8. SABRIL [Concomitant]
  9. CARAFATE [Concomitant]

REACTIONS (7)
  - COUGH [None]
  - GAIT DISTURBANCE [None]
  - PYREXIA [None]
  - DYSPNOEA [None]
  - CYANOSIS [None]
  - CONVULSION [None]
  - NASAL CONGESTION [None]
